FAERS Safety Report 4581711-4 (Version None)
Quarter: 2005Q1

REPORT INFORMATION
  Report Type: 
  Country: None (occurrence: None)
  Receive Date: 20050214
  Receipt Date: 20041223
  Transmission Date: 20050727
  Serious: No
  Sender: FDA-Public Use
  Company Number: US-GLAXOSMITHKLINE-A0538513A

PATIENT
  Age: 32 Year
  Sex: Female
  Weight: 27.7 kg

DRUGS (4)
  1. LAMICTAL [Suspect]
     Dosage: 25MG PER DAY
     Route: 048
     Dates: start: 20040301
  2. DEPAKOTE [Concomitant]
  3. VALPROIC ACID [Concomitant]
  4. TEGRETOL [Concomitant]

REACTIONS (1)
  - RASH [None]
